FAERS Safety Report 16780468 (Version 1)
Quarter: 2019Q3

REPORT INFORMATION
  Report Type: Spontaneous
  Country: CR (occurrence: CR)
  Receive Date: 20190906
  Receipt Date: 20190906
  Transmission Date: 20191005
  Serious: Yes (Death, Other)
  Sender: FDA-Public Use
  Company Number: CR-ASTELLAS-2019US035169

PATIENT
  Age: 20 Year
  Sex: Female

DRUGS (4)
  1. MYCOPHENOLATE [Suspect]
     Active Substance: MYCOPHENOLIC ACID
     Indication: PROPHYLAXIS AGAINST GRAFT VERSUS HOST DISEASE
     Dosage: UNK UNK, UNKNOWN FREQ.
     Route: 065
  2. FLUDARABINE [Concomitant]
     Active Substance: FLUDARABINE PHOSPHATE
     Indication: BONE MARROW TRANSPLANT
     Dosage: UNK UNK, UNKNOWN FREQUENCY, ON DAYS +2 AND +3,
     Route: 065
  3. MELPHALAN. [Concomitant]
     Active Substance: MELPHALAN
     Indication: BONE MARROW TRANSPLANT
     Dosage: UNK UNK, UNKNOWN FREQUENCY, ON DAYS +2 AND +3
     Route: 065
  4. TACROLIMUS. [Suspect]
     Active Substance: TACROLIMUS
     Indication: PROPHYLAXIS AGAINST GRAFT VERSUS HOST DISEASE
     Dosage: UNK UNK, UNKNOWN FREQ.
     Route: 065

REACTIONS (4)
  - Cardiac arrest [Fatal]
  - Infection [Unknown]
  - Adenovirus infection [Fatal]
  - Product use in unapproved indication [Unknown]
